FAERS Safety Report 9248702 (Version 1)
Quarter: 2013Q1

REPORT INFORMATION
  Report Type: Spontaneous
  Country: US (occurrence: None)
  Receive Date: 20130305
  Receipt Date: 20130305
  Transmission Date: 20140127
  Serious: Yes (Other)
  Sender: FDA-Public Use
  Company Number: 163-21880-12100358

PATIENT
  Age: 74 Year
  Sex: Male
  Weight: 71.22 kg

DRUGS (9)
  1. REVLIMID [Suspect]
     Indication: MYELODYSPLASTIC SYNDROME
     Dosage: 10 MG, 28 IN 28 D, PO
     Route: 048
     Dates: start: 201208
  2. BENZONATATE (BENZONATATE) (UNKNOWN) [Concomitant]
  3. AVELOX (MOXIFLOXACIN HYDROCHLORIDE) (UNKNOWN) [Concomitant]
  4. FEXOFENADINE (FEXOFENADINE) (UNKNOWN) [Concomitant]
  5. VALACYCLOVIR (VALACICLOVIR HYDROCHLORIDE) (UNKNOWN) [Concomitant]
  6. ROBITUSSIN (TUSSIN DM) (UNKNOWN) [Concomitant]
  7. VFEND (VORICONAZOLE) (UNKNOWN) [Concomitant]
  8. VORICONAZOLE (VORICONAZOLE) (UNKNOWN) [Concomitant]
  9. COLACE (DOCUSATE SODIUM) (UNKNOWN) [Concomitant]

REACTIONS (3)
  - Blood potassium decreased [None]
  - Lung infection [None]
  - Sinusitis [None]
